FAERS Safety Report 6526906-5 (Version None)
Quarter: 2010Q1

REPORT INFORMATION
  Report Type: 
  Country: None (occurrence: None)
  Receive Date: 20100105
  Receipt Date: 20091223
  Transmission Date: 20100710
  Serious: Yes (Hospitalization, Other)
  Sender: FDA-Public Use
  Company Number: AU-PFIZER INC-2007040459

PATIENT
  Age: 25 Year
  Sex: Male
  Weight: 108 kg

DRUGS (4)
  1. ZELDOX [Suspect]
     Indication: SCHIZOPHRENIA
     Dosage: 40 MG, 2X/DAY
     Route: 048
     Dates: start: 20070414, end: 20070419
  2. ZELDOX [Suspect]
     Indication: BIPOLAR DISORDER
  3. CLOZAPINE [Suspect]
     Indication: SCHIZOPHRENIA
     Dosage: DAILY
     Route: 048
     Dates: end: 20070413
  4. QUETIAPINE [Suspect]
     Dosage: DAILY

REACTIONS (7)
  - ABNORMAL BEHAVIOUR [None]
  - GRAND MAL CONVULSION [None]
  - INSOMNIA [None]
  - MANIA [None]
  - RESTLESSNESS [None]
  - SCHIZOPHRENIA [None]
  - WEIGHT INCREASED [None]
